FAERS Safety Report 14006354 (Version 1)
Quarter: 2017Q3

REPORT INFORMATION
  Report Type: Spontaneous
  Country: US (occurrence: US)
  Receive Date: 20170924
  Receipt Date: 20170924
  Transmission Date: 20171128
  Serious: Yes (Death, Hospitalization)
  Sender: FDA-Public Use
  Company Number: US-JNJFOC-20170919341

PATIENT
  Age: 41 Year
  Sex: Female

DRUGS (2)
  1. IRON [Suspect]
     Active Substance: IRON
     Indication: PRODUCT USED FOR UNKNOWN INDICATION
     Route: 065
  2. DIPHENHYDRAMINE. [Suspect]
     Active Substance: DIPHENHYDRAMINE
     Indication: PRODUCT USED FOR UNKNOWN INDICATION
     Route: 065

REACTIONS (9)
  - Hypotension [Fatal]
  - Coma [Fatal]
  - Metabolic acidosis [Fatal]
  - Ventricular arrhythmia [Fatal]
  - Hepatotoxicity [Fatal]
  - Bradypnoea [Fatal]
  - Toxicity to various agents [Fatal]
  - Tachycardia [Fatal]
  - Acute respiratory distress syndrome [Fatal]
